FAERS Safety Report 24581568 (Version 1)
Quarter: 2024Q4

REPORT INFORMATION
  Report Type: Spontaneous
  Country: NO (occurrence: NO)
  Receive Date: 20241105
  Receipt Date: 20241105
  Transmission Date: 20250114
  Serious: Yes (Life-Threatening, Hospitalization)
  Sender: BOEHRINGER INGELHEIM
  Company Number: None

PATIENT
  Age: 62 Year
  Sex: Female

DRUGS (1)
  1. OFEV [Suspect]
     Active Substance: NINTEDANIB
     Indication: Rheumatoid arthritis-associated interstitial lung disease
     Route: 048
     Dates: start: 20230906, end: 20240919

REACTIONS (9)
  - Intestinal ischaemia [Recovering/Resolving]
  - Mesenteric artery thrombosis [Recovering/Resolving]
  - Laparotomy [Recovering/Resolving]
  - Thromboembolectomy [Recovering/Resolving]
  - Abdominal pain [Recovering/Resolving]
  - Tracheostomy [Recovering/Resolving]
  - Colectomy [Recovering/Resolving]
  - Intestinal resection [Recovering/Resolving]
  - Rehabilitation therapy [Recovering/Resolving]

NARRATIVE: CASE EVENT DATE: 20240923
